FAERS Safety Report 20812820 (Version 6)
Quarter: 2022Q4

REPORT INFORMATION
  Report Type: Spontaneous
  Country: CA (occurrence: CA)
  Receive Date: 20220511
  Receipt Date: 20221012
  Transmission Date: 20230112
  Serious: Yes (Other)
  Sender: FDA-Public Use
  Company Number: CA-CELLTRION INC.-2022CA006009

PATIENT

DRUGS (6)
  1. INFLECTRA [Suspect]
     Active Substance: INFLIXIMAB-DYYB
     Indication: Ankylosing spondylitis
     Dosage: 472.5 MG, 0,2,6, THEN EVERY 8 WEEKS
     Route: 042
     Dates: start: 20220308
  2. INFLECTRA [Suspect]
     Active Substance: INFLIXIMAB-DYYB
     Dosage: 450 MG (5MG/KG), 0,2, 6, THEN EVERY 8 WEEKS, DISCONTINUED
     Route: 042
     Dates: start: 20220308, end: 20220811
  3. INFLECTRA [Suspect]
     Active Substance: INFLIXIMAB-DYYB
     Dosage: 450 MG (5MG/KG), 2, 6, THEN EVERY 8 WEEKS
     Route: 042
     Dates: start: 20220322
  4. INFLECTRA [Suspect]
     Active Substance: INFLIXIMAB-DYYB
     Dosage: 450 MG (5MG/KG), 2, 6, THEN EVERY 8 WEEKS
     Route: 042
     Dates: start: 20220419
  5. INFLECTRA [Suspect]
     Active Substance: INFLIXIMAB-DYYB
     Dosage: 450 MG/KG , (5MG/KG) ON WEEK 0,2,6, THEN Q8WEEKS
     Route: 042
     Dates: start: 20220811
  6. ACETAMINOPHEN [Concomitant]
     Active Substance: ACETAMINOPHEN
     Dosage: 1000 MG
     Route: 048

REACTIONS (14)
  - Pruritus [Unknown]
  - Treatment failure [Unknown]
  - Off label use [Unknown]
  - Off label use [Unknown]
  - Intentional product use issue [Unknown]
  - Psoriasis [Not Recovered/Not Resolved]
  - Rash [Unknown]
  - Acne [Unknown]
  - Pruritus [Unknown]
  - Fatigue [Recovered/Resolved]
  - Musculoskeletal stiffness [Unknown]
  - Peripheral swelling [Unknown]
  - Swelling [Recovered/Resolved]
  - Pain [Not Recovered/Not Resolved]

NARRATIVE: CASE EVENT DATE: 20220101
